FAERS Safety Report 9914343 (Version 1)
Quarter: 2014Q1

REPORT INFORMATION
  Report Type: Spontaneous
  Country: TR (occurrence: TR)
  Receive Date: 20140220
  Receipt Date: 20140220
  Transmission Date: 20141002
  Serious: Yes (Death, Other)
  Sender: FDA-Public Use
  Company Number: TR-PFIZER INC-2014047372

PATIENT
  Age: 88 Year
  Sex: Female
  Weight: 50 kg

DRUGS (9)
  1. ERAXIS [Suspect]
     Indication: CANDIDA INFECTION
     Dosage: UNK
     Route: 042
     Dates: start: 20140205
  2. MERONEM [Concomitant]
  3. DILTIZEM [Concomitant]
  4. LASIX [Concomitant]
  5. ALDACTONE [Concomitant]
     Dosage: UNK
     Dates: start: 20140205, end: 20140205
  6. PLAVIX [Concomitant]
  7. TEBOKAN [Concomitant]
  8. CLEXANE [Concomitant]
  9. VASTAREL [Concomitant]

REACTIONS (2)
  - Hypotension [Fatal]
  - Bradycardia [Fatal]
